FAERS Safety Report 20547002 (Version 1)
Quarter: 2022Q1

REPORT INFORMATION
  Report Type: Spontaneous
  Country: IN (occurrence: None)
  Receive Date: 20220303
  Receipt Date: 20220303
  Transmission Date: 20220423
  Serious: Yes (Other)
  Sender: FDA-Public Use
  Company Number: IN-Fresenius Kabi-FK202202345

PATIENT
  Age: 58 Year
  Sex: Male

DRUGS (12)
  1. PROPOFOL [Suspect]
     Active Substance: PROPOFOL
     Indication: Induction and maintenance of anaesthesia
     Route: 042
  2. FENTANYL [Suspect]
     Active Substance: FENTANYL
     Indication: Induction and maintenance of anaesthesia
     Dosage: 850 MICROGRAM (TOTAL INTRAVENOUS ANESTHESIA)
     Route: 042
  3. FENTANYL [Suspect]
     Active Substance: FENTANYL
     Indication: Epidural analgesia
     Dosage: A MIXTURE OF ROPIVACAINE (0.1 PERCENT) AND FENTANYL (1 UG/ML), AT 6 ML PER HOUR
     Route: 008
  4. ROPIVACAINE [Suspect]
     Active Substance: ROPIVACAINE
     Indication: Epidural analgesia
     Dosage: A MIXTURE OF ROPIVACAINE (0.1 PERCENT) AND FENTANYL (1 UG/ML), AT 6 ML PER HOUR
     Route: 065
  5. PANCURONIUM BROMIDE [Suspect]
     Active Substance: PANCURONIUM BROMIDE
     Indication: Hypotonia
     Route: 065
  6. ROSUVASTATIN [Concomitant]
     Active Substance: ROSUVASTATIN
     Indication: Surgery
  7. AMLODIPINE [Concomitant]
     Active Substance: AMLODIPINE BESYLATE
     Indication: Hypertension
  8. PAZOPANIB [Concomitant]
     Active Substance: PAZOPANIB
     Indication: Immunomodulatory therapy
  9. CEFOPERAZONE SODIUM\SULBACTAM SODIUM [Concomitant]
     Active Substance: CEFOPERAZONE SODIUM\SULBACTAM SODIUM
     Indication: Antibiotic therapy
  10. ONDANSETRON [Concomitant]
     Active Substance: ONDANSETRON
     Indication: Antibiotic therapy
  11. RANITIDINE [Concomitant]
     Active Substance: RANITIDINE
     Indication: Antibiotic therapy
  12. ACETAMINOPHEN [Concomitant]
     Active Substance: ACETAMINOPHEN
     Indication: Antibiotic therapy

REACTIONS (3)
  - Parosmia [Recovered/Resolved]
  - Dysgeusia [Recovered/Resolved]
  - Agitation [Recovered/Resolved]
